FAERS Safety Report 6929807-3 (Version None)
Quarter: 2010Q3

REPORT INFORMATION
  Report Type: 
  Country: None (occurrence: None)
  Receive Date: 20100818
  Receipt Date: 20100818
  Transmission Date: 20110219
  Serious: Yes (Disabling)
  Sender: FDA-Public Use
  Company Number: None

PATIENT
  Age: 56 Year
  Sex: Male
  Weight: 80.7403 kg

DRUGS (2)
  1. PROAIR HFA [Suspect]
     Indication: ASTHMA
     Dosage: 2 DAILY INHAL
     Dates: start: 20100710, end: 20100724
  2. PROAIR HFA [Suspect]
     Indication: ASTHMA
     Dosage: 2 DAILY INHAL
     Dates: start: 20100725, end: 20100815

REACTIONS (2)
  - LIQUID PRODUCT PHYSICAL ISSUE [None]
  - PRODUCT QUALITY ISSUE [None]
